FAERS Safety Report 22336531 (Version 1)
Quarter: 2023Q2

REPORT INFORMATION
  Report Type: Spontaneous
  Country: US (occurrence: US)
  Receive Date: 20230518
  Receipt Date: 20230518
  Transmission Date: 20230722
  Serious: No
  Sender: FDA-Public Use
  Company Number: US-STERISCIENCE B.V.-2022-ST-000413

PATIENT
  Age: 16 Year
  Sex: Female

DRUGS (12)
  1. PIPERACILLIN SODIUM\TAZOBACTAM SODIUM [Suspect]
     Active Substance: PIPERACILLIN SODIUM\TAZOBACTAM SODIUM
     Indication: COVID-19
     Dosage: UNK
  2. ONDANSETRON [Suspect]
     Active Substance: ONDANSETRON
     Indication: Nausea
     Dosage: UNK
  3. ONDANSETRON [Suspect]
     Active Substance: ONDANSETRON
     Indication: Vomiting
  4. ACETAMINOPHEN [Suspect]
     Active Substance: ACETAMINOPHEN
     Indication: Nausea
     Dosage: UNK
  5. ACETAMINOPHEN [Suspect]
     Active Substance: ACETAMINOPHEN
     Indication: Vomiting
  6. DIPHENHYDRAMINE [Suspect]
     Active Substance: DIPHENHYDRAMINE
     Indication: Swollen tongue
     Dosage: UNK
  7. ESCITALOPRAM [Suspect]
     Active Substance: ESCITALOPRAM OXALATE
     Indication: Anxiety
     Dosage: UNK
  8. ESCITALOPRAM [Suspect]
     Active Substance: ESCITALOPRAM OXALATE
     Indication: Depression
  9. ALBUTEROL [Suspect]
     Active Substance: ALBUTEROL
     Indication: Prophylaxis
     Dosage: UNK
  10. ASPIRIN [Suspect]
     Active Substance: ASPIRIN
     Indication: Prophylaxis
     Dosage: 81 MILLIGRAM, QD
  11. TOCILIZUMAB [Concomitant]
     Active Substance: TOCILIZUMAB
     Indication: COVID-19
     Dosage: UNK
  12. REMDESIVIR [Concomitant]
     Active Substance: REMDESIVIR
     Indication: COVID-19
     Dosage: UNK

REACTIONS (2)
  - Maternal exposure during pregnancy [Unknown]
  - Off label use [Unknown]
